FAERS Safety Report 7913332-7 (Version None)
Quarter: 2011Q4

REPORT INFORMATION
  Report Type: 
  Country: None (occurrence: None)
  Receive Date: 20111114
  Receipt Date: 20111103
  Transmission Date: 20120403
  Serious: Yes (Hospitalization, Other)
  Sender: FDA-Public Use
  Company Number: US-ASTRAZENECA-2011SE36044

PATIENT
  Age: 76 Year
  Sex: Female
  Weight: 64 kg

DRUGS (32)
  1. ATACAND [Suspect]
     Route: 048
     Dates: start: 20110901
  2. DILANTIN [Suspect]
     Dates: start: 19960101
  3. CARDIZEM [Suspect]
  4. NEBIVOLOL HCL [Suspect]
  5. LOSARTAN POTASSIUM [Suspect]
  6. ATACAND [Suspect]
     Indication: HYPERTENSION
     Route: 048
     Dates: start: 19960101, end: 20110301
  7. NORVASC [Suspect]
     Dates: start: 19950101
  8. XANAX [Suspect]
     Indication: NERVOUSNESS
  9. DEPAKOTE [Suspect]
     Indication: CONVULSION
     Dates: start: 19960101
  10. CLONIDINE [Concomitant]
     Indication: HYPERTENSION
  11. HYDROCHLOROTHIAZIDE [Suspect]
     Dates: start: 20110307
  12. NORVASC [Suspect]
     Dates: start: 20100101
  13. CIPRO [Suspect]
  14. CLONIDINE [Concomitant]
     Indication: BLOOD PRESSURE
  15. LISINOPRIL [Suspect]
     Route: 048
  16. TOPROL-XL [Suspect]
     Route: 048
  17. FUROSEMIDE [Suspect]
  18. NOPALEA [Suspect]
     Indication: BLOOD TRIGLYCERIDES INCREASED
     Dates: start: 20100101
  19. BENICAR [Suspect]
     Indication: HYPERTENSION
     Dates: end: 20070101
  20. MACROBID [Suspect]
  21. BACTRIM [Suspect]
  22. LEVOTHYROXINE SODIUM [Concomitant]
  23. NOPALEA [Suspect]
     Indication: ARTHRALGIA
     Dates: start: 20100101
  24. NORVASC [Suspect]
     Indication: HYPERTENSION
     Dates: start: 19950101
  25. NORVASC [Suspect]
     Dates: start: 19970101
  26. AVAPRO [Suspect]
     Indication: HYPERTENSION
  27. VALSARTAN [Suspect]
  28. NORVASC [Suspect]
     Dates: start: 20100101
  29. REGLAN [Suspect]
  30. LEVAQUIN [Suspect]
  31. LIDOCAINE [Suspect]
     Indication: INGROWING NAIL
     Dates: start: 20100513, end: 20100513
  32. NORVASC [Suspect]
     Dates: start: 19970101

REACTIONS (29)
  - WEIGHT DECREASED [None]
  - KIDNEY INFECTION [None]
  - LUNG NEOPLASM [None]
  - CYSTITIS [None]
  - HAEMOGLOBIN DECREASED [None]
  - HEADACHE [None]
  - BLOOD COUNT ABNORMAL [None]
  - DIZZINESS [None]
  - ABDOMINAL PAIN [None]
  - BLOOD TRIGLYCERIDES INCREASED [None]
  - PALPITATIONS [None]
  - URINARY INCONTINENCE [None]
  - CARBUNCLE [None]
  - GALLBLADDER DISORDER [None]
  - ARTERIOGRAM CORONARY ABNORMAL [None]
  - PLATELET COUNT DECREASED [None]
  - BLOOD PRESSURE INCREASED [None]
  - INSOMNIA [None]
  - NERVOUSNESS [None]
  - ANAEMIA [None]
  - LOSS OF CONSCIOUSNESS [None]
  - HYPOAESTHESIA [None]
  - MICTURITION FREQUENCY DECREASED [None]
  - BURNING SENSATION [None]
  - ARTERIAL OCCLUSIVE DISEASE [None]
  - GASTRIC DISORDER [None]
  - INGROWING NAIL [None]
  - DRUG INEFFECTIVE [None]
  - FULL BLOOD COUNT DECREASED [None]
